FAERS Safety Report 4437922-1 (Version None)
Quarter: 2004Q3

REPORT INFORMATION
  Report Type: 
  Country: None (occurrence: None)
  Receive Date: 20040728
  Receipt Date: 20040319
  Transmission Date: 20050211
  Serious: No
  Sender: FDA-Public Use
  Company Number: USA040362584

PATIENT
  Age: 38 Year
  Sex: Female
  Weight: 52 kg

DRUGS (2)
  1. STRATTERA [Suspect]
     Indication: ATTENTION DEFICIT/HYPERACTIVITY DISORDER
     Dosage: 40 MG DAY
     Dates: start: 20040206
  2. HIGH DOSE VITAMIN MINERAL AMINO ACID SUPPLEMENT [Concomitant]

REACTIONS (3)
  - DIZZINESS [None]
  - EUPHORIC MOOD [None]
  - MIDDLE INSOMNIA [None]
